FAERS Safety Report 4881000-4 (Version None)
Quarter: 2005Q4

REPORT INFORMATION
  Report Type: 
  Country: None (occurrence: None)
  Receive Date: 20051223
  Receipt Date: 20051027
  Transmission Date: 20060501
  Serious: No
  Sender: FDA-Public Use
  Company Number: 05P-163-0315388-00

PATIENT
  Age: 55 Year
  Sex: Female
  Weight: 47.1741 kg

DRUGS (3)
  1. HUMIRA [Suspect]
     Indication: RHEUMATOID ARTHRITIS
     Dosage: 40 MG, 1 IN 2 WK, SUBCUTANEOUS
     Route: 058
     Dates: start: 20040301, end: 20050915
  2. LEVOTHYROXINE SODIUM [Concomitant]
  3. PARACETAMOL [Concomitant]

REACTIONS (1)
  - B-CELL LYMPHOMA [None]
